FAERS Safety Report 16628627 (Version 2)
Quarter: 2019Q3

REPORT INFORMATION
  Report Type: Spontaneous
  Country: FR (occurrence: FR)
  Receive Date: 20190725
  Receipt Date: 20190928
  Transmission Date: 20191004
  Serious: Yes (Death, Life-Threatening, Hospitalization, Other)
  Sender: FDA-Public Use
  Company Number: FR-ACCORD-145796

PATIENT
  Age: 58 Year
  Sex: Male

DRUGS (5)
  1. OXALIPLATIN. [Suspect]
     Active Substance: OXALIPLATIN
     Indication: LINITIS PLASTICA
  2. MERCAPTOPURINE/MERCAPTOPURINE ANHYDROUS [Concomitant]
     Indication: COLITIS ULCERATIVE
     Dates: start: 201012
  3. FLUOROURACIL. [Suspect]
     Active Substance: FLUOROURACIL
     Indication: LINITIS PLASTICA
  4. INFLIXIMAB [Concomitant]
     Active Substance: INFLIXIMAB
     Indication: COLITIS ULCERATIVE
     Dosage: ALSO RECEIVED FORM DEC-2010
     Dates: start: 2017
  5. FOLINIC ACID [Suspect]
     Active Substance: LEUCOVORIN
     Indication: LINITIS PLASTICA

REACTIONS (2)
  - Septic shock [Fatal]
  - Febrile neutropenia [Fatal]
